FAERS Safety Report 4297281-4 (Version None)
Quarter: 2004Q1

REPORT INFORMATION
  Report Type: 
  Country: None (occurrence: None)
  Receive Date: 20040213
  Receipt Date: 20040203
  Transmission Date: 20041129
  Serious: Yes (Other)
  Sender: FDA-Public Use
  Company Number: US-JNJFOC-20040200768

PATIENT
  Age: 60 Year
  Sex: Female
  Weight: 68.0396 kg

DRUGS (16)
  1. REMICADE [Suspect]
     Indication: CROHN'S DISEASE
     Dosage: INTRAVENOUS
     Route: 042
     Dates: start: 20040122
  2. IMURAN [Concomitant]
  3. VIOXX [Concomitant]
  4. CELEXA [Concomitant]
  5. ATACAND [Concomitant]
  6. LORAZEPAM [Concomitant]
  7. NEURONTIN (CITICOLINE SODIUM) [Concomitant]
  8. ZOCOR [Concomitant]
  9. CLONAZEPAM [Concomitant]
  10. ASACOL [Concomitant]
  11. FLEXERIL [Concomitant]
  12. LOTENSIN [Concomitant]
  13. ATENOLOL [Concomitant]
  14. ESTRADIOL [Concomitant]
  15. VALTREX [Concomitant]
  16. PERCOSET (OXYCOCET) [Concomitant]

REACTIONS (2)
  - ARTHRALGIA [None]
  - INSOMNIA [None]
